FAERS Safety Report 5679249-6 (Version None)
Quarter: 2008Q1

REPORT INFORMATION
  Report Type: 
  Country: None (occurrence: None)
  Receive Date: 20080325
  Receipt Date: 20080314
  Transmission Date: 20080703
  Serious: Yes (Other)
  Sender: FDA-Public Use
  Company Number: US-BAYER-200810273BCC

PATIENT
  Age: 2 Year
  Sex: Male
  Weight: 14 kg

DRUGS (1)
  1. ALEVE [Suspect]
     Indication: DRUG USE FOR UNKNOWN INDICATION
     Dosage: UNIT DOSE: 220 MG
     Route: 048
     Dates: start: 20080109

REACTIONS (4)
  - ACCIDENTAL EXPOSURE [None]
  - CHOKING [None]
  - CYANOSIS [None]
  - PHARMACEUTICAL PRODUCT COMPLAINT [None]
